FAERS Safety Report 9341553 (Version 2)
Quarter: 2013Q2

REPORT INFORMATION
  Report Type: Report from Study
  Country: NL (occurrence: NL)
  Receive Date: 20130611
  Receipt Date: 20130620
  Transmission Date: 20140414
  Serious: Yes (Death, Hospitalization, Other)
  Sender: FDA-Public Use
  Company Number: NL-GENZYME-CLOF-1002670

PATIENT
  Age: 53 Year
  Sex: Female
  Weight: 61 kg

DRUGS (17)
  1. EVOLTRA [Suspect]
     Indication: ACUTE MYELOID LEUKAEMIA
     Dosage: 17 MG, (D2, D4,D6,D8,D10) (INDUCTION THERAPY); 1 HOUR INFUSION
     Route: 042
     Dates: start: 20130516
  2. CYTOSINE ARABINOSIDE [Suspect]
     Indication: ACUTE MYELOID LEUKAEMIA
     Dosage: 170 MG, INDUCTION THERAPY (CONTINOUS INFUSION)
     Route: 042
     Dates: start: 20130515
  3. IDARUBICIN [Suspect]
     Indication: ACUTE MYELOID LEUKAEMIA
     Dosage: 17 MG, UNK (INDUCTION THERAPY)
     Route: 042
     Dates: start: 20130515
  4. ESPROXIN [Concomitant]
     Indication: PRODUCT USED FOR UNKNOWN INDICATION
     Dosage: UNK
     Route: 065
     Dates: start: 20130516
  5. MORPHINE [Concomitant]
     Indication: PRODUCT USED FOR UNKNOWN INDICATION
     Dosage: UNK
     Route: 065
  6. METRONIDAZOL [Concomitant]
     Indication: URINARY TRACT INFECTION
     Dosage: 500 MG, TID
     Route: 048
     Dates: start: 20130515, end: 20130531
  7. FLUCONAZOLE [Concomitant]
     Indication: CANDIDA INFECTION
     Dosage: 400 MG, QD
     Route: 048
     Dates: start: 20130515, end: 20130522
  8. OXYCODONE [Concomitant]
     Indication: ABDOMINAL PAIN
     Dosage: 5 MG, PRN
     Route: 048
     Dates: start: 20130513, end: 20130517
  9. IPRATROPIUM W [Concomitant]
     Indication: CHRONIC OBSTRUCTIVE PULMONARY DISEASE
     Dosage: 1 DF (1/2 X 2.5 MG), 6 DD (INHALATION)
     Route: 065
  10. RASBURICASE [Concomitant]
     Indication: PROPHYLAXIS
     Dosage: 6 MG, QD
     Route: 042
     Dates: start: 20130512, end: 20130515
  11. PREDNISOLON [Concomitant]
     Indication: ACUTE RESPIRATORY DISTRESS SYNDROME
     Dosage: 100 MG, BID
     Route: 042
     Dates: start: 20130513, end: 20130515
  12. PREDNISOLON [Concomitant]
     Indication: PROPHYLAXIS
  13. HYDROXYCARBAMIDE [Concomitant]
     Indication: LEUKOCYTOSIS
     Dosage: 3000 MG, QD
     Route: 048
     Dates: start: 20130502, end: 20130514
  14. CIPROFLOXACIN [Concomitant]
     Indication: URINARY TRACT INFECTION
     Dosage: 500 MG, BID
     Route: 048
     Dates: start: 20130516, end: 20130531
  15. CASPOFUNGIN [Concomitant]
     Indication: CANDIDA INFECTION
     Dosage: 70 MG, QD
     Route: 042
     Dates: start: 20130522, end: 20130531
  16. TEICOPLANIN [Concomitant]
     Indication: INFECTION
     Dosage: 800 MG, ONCE
     Route: 042
     Dates: start: 20130531
  17. HYDROCORTISON [Concomitant]
     Indication: VENOUS INSUFFICIENCY
     Dosage: 100 MG, TID
     Route: 042
     Dates: start: 20130531

REACTIONS (11)
  - Staphylococcus test positive [Fatal]
  - Atrial fibrillation [Unknown]
  - Pleural effusion [Unknown]
  - Pancytopenia [Unknown]
  - Haematuria [Unknown]
  - Bronchopulmonary aspergillosis [Fatal]
  - Atelectasis [Fatal]
  - Caecitis [Fatal]
  - Fluid retention [Fatal]
  - Septic shock [Fatal]
  - Respiratory failure [Fatal]
